FAERS Safety Report 12532237 (Version 2)
Quarter: 2017Q2

REPORT INFORMATION
  Report Type: Report from Study
  Country: GB (occurrence: GB)
  Receive Date: 20160706
  Receipt Date: 20170516
  Transmission Date: 20170830
  Serious: Yes (Other)
  Sender: FDA-Public Use
  Company Number: GB-ASTRAZENECA-2016SE70948

PATIENT
  Age: 26221 Day
  Sex: Male
  Weight: 83.7 kg

DRUGS (3)
  1. HYDROXYCHLOROQUINE [Concomitant]
     Active Substance: HYDROXYCHLOROQUINE
     Indication: ARTHRALGIA
     Route: 048
     Dates: start: 201407
  2. OLAPARIB [Suspect]
     Active Substance: OLAPARIB
     Indication: GLIOBLASTOMA
     Route: 048
     Dates: start: 20160613
  3. RADIOTHERAPY [Suspect]
     Active Substance: RADIATION THERAPY
     Indication: GLIOBLASTOMA
     Dosage: CUMULATIVE DOSE GIVEN PRIOR TO SAE: 5.34 GY DOSE PRIOR TO SAE: 2.67 GY
     Route: 065
     Dates: start: 20160616

REACTIONS (1)
  - Agitation [Recovered/Resolved]

NARRATIVE: CASE EVENT DATE: 20160617
